FAERS Safety Report 5920464-1 (Version None)
Quarter: 2008Q4

REPORT INFORMATION
  Report Type: 
  Country: None (occurrence: None)
  Receive Date: 20081015
  Receipt Date: 20081015
  Transmission Date: 20090506
  Serious: Yes (Hospitalization)
  Sender: FDA-Public Use
  Company Number: None

PATIENT
  Age: 49 Year
  Sex: Male

DRUGS (2)
  1. LISINOPRIL AND HYDROCHLOROTHIAZIDE [Suspect]
     Dates: start: 20080902, end: 20080916
  2. CHOLESTYRAMINE [Suspect]
     Dates: start: 20080903, end: 20080916

REACTIONS (6)
  - ALCOHOL USE [None]
  - DEHYDRATION [None]
  - DIARRHOEA [None]
  - HYPONATRAEMIA [None]
  - HYPOPHAGIA [None]
  - HYPOVOLAEMIA [None]
